FAERS Safety Report 4362829-8 (Version None)
Quarter: 2004Q2

REPORT INFORMATION
  Report Type: 
  Country: None (occurrence: None)
  Receive Date: 20040524
  Receipt Date: 20040512
  Transmission Date: 20050107
  Serious: Yes (Death)
  Sender: FDA-Public Use
  Company Number: US-JNJFOC-20040503309

PATIENT
  Sex: Male
  Weight: 60.5 kg

DRUGS (7)
  1. TOPAMAX [Suspect]
     Indication: MIGRAINE PROPHYLAXIS
     Route: 049
     Dates: start: 20040404, end: 20040410
  2. KEPPRA [Suspect]
     Indication: NEUROPATHIC PAIN
     Route: 049
     Dates: start: 20030905, end: 20040410
  3. KEPPRA [Suspect]
     Route: 049
     Dates: start: 20030905, end: 20040410
  4. FENTANYL [Concomitant]
     Route: 062
     Dates: start: 20000101, end: 20040410
  5. PHENERGAN [Concomitant]
     Route: 049
     Dates: start: 20040301, end: 20040410
  6. DIFLUNISAL [Concomitant]
     Dates: start: 20031101, end: 20040410
  7. MAXALT [Concomitant]
     Dosage: PRN
     Route: 049
     Dates: start: 20040206, end: 20040410

REACTIONS (2)
  - COMPLETED SUICIDE [None]
  - GUN SHOT WOUND [None]
